FAERS Safety Report 23188766 (Version 1)
Quarter: 2023Q4

REPORT INFORMATION
  Report Type: Other
  Country: None (occurrence: RO)
  Receive Date: 20231115
  Receipt Date: 20231115
  Transmission Date: 20240110
  Serious: Yes (Hospitalization)
  Sender: FDA-Public Use
  Company Number: RO-B.Braun Medical Inc.-2148327

PATIENT
  Age: 17 Year
  Sex: Male
  Weight: 64 kg

DRUGS (9)
  1. BUPIVACAINE HYDROCHLORIDE WITH DEXTROSE [Suspect]
     Active Substance: BUPIVACAINE HYDROCHLORIDE
     Indication: Nerve block
  2. ENOXAPARIN [Concomitant]
     Active Substance: ENOXAPARIN
  3. NITROGLYCERIN [Concomitant]
     Active Substance: NITROGLYCERIN
  4. Topical nitroglycerin 2% ointment, [Concomitant]
  5. AMOXICILLIN [Concomitant]
     Active Substance: AMOXICILLIN
  6. ROPIVACAINE. [Concomitant]
     Active Substance: ROPIVACAINE HYDROCHLORIDE
  7. PENTOXIFYLLINE [Concomitant]
     Active Substance: PENTOXIFYLLINE
  8. AMOXICILLIN\CLAVULANIC ACID [Concomitant]
     Active Substance: AMOXICILLIN\CLAVULANIC ACID
  9. ALPROSTADIL [Concomitant]
     Active Substance: ALPROSTADIL

REACTIONS (4)
  - Peripheral ischaemia [None]
  - Penile necrosis [None]
  - Product administered to patient of inappropriate age [None]
  - Off label use [None]
